FAERS Safety Report 18877129 (Version 1)
Quarter: 2021Q1

REPORT INFORMATION
  Report Type: Spontaneous
  Country: JP (occurrence: JP)
  Receive Date: 20210210
  Receipt Date: 20210210
  Transmission Date: 20210420
  Serious: Yes (Hospitalization)
  Sender: FDA-Public Use
  Company Number: JP-ROCHE-2767078

PATIENT
  Age: 54 Year

DRUGS (2)
  1. ACTEMRA [Suspect]
     Active Substance: TOCILIZUMAB
     Indication: CYTOKINE RELEASE SYNDROME
     Dosage: DOSAGE IS UNCERTAIN.
     Route: 065
     Dates: start: 20200720
  2. KYMRIAH [Concomitant]
     Active Substance: TISAGENLECLEUCEL
     Indication: DIFFUSE LARGE B-CELL LYMPHOMA
     Dosage: DOSAGE IS UNCERTAIN.
     Route: 041
     Dates: start: 20200716

REACTIONS (5)
  - Drug eruption [Recovered/Resolved]
  - Pancytopenia [Recovering/Resolving]
  - Blood fibrinogen decreased [Recovering/Resolving]
  - Red blood cell count decreased [Recovered/Resolved]
  - Rash [Not Recovered/Not Resolved]

NARRATIVE: CASE EVENT DATE: 20200720
